FAERS Safety Report 19893763 (Version 3)
Quarter: 2022Q1

REPORT INFORMATION
  Report Type: Spontaneous
  Country: US (occurrence: US)
  Receive Date: 20210928
  Receipt Date: 20220111
  Transmission Date: 20220424
  Serious: No
  Sender: FDA-Public Use
  Company Number: US-MYLANLABS-2021M1064187

PATIENT
  Age: 39 Year
  Sex: Female
  Weight: 64 kg

DRUGS (1)
  1. FENTANYL TRANSDERMAL SYSTEM [Suspect]
     Active Substance: FENTANYL
     Dosage: WEAR 2 PATCHES. CHANGE EVERY 48 HOURS
     Route: 062

REACTIONS (8)
  - Maternal exposure during pregnancy [Recovered/Resolved]
  - Maternal exposure during breast feeding [Unknown]
  - Inappropriate schedule of product administration [Not Recovered/Not Resolved]
  - Product storage error [Unknown]
  - Product adhesion issue [Not Recovered/Not Resolved]
  - Application site rash [Recovered/Resolved]
  - Application site pruritus [Unknown]
  - Withdrawal syndrome [Unknown]

NARRATIVE: CASE EVENT DATE: 20210917
